FAERS Safety Report 5114094-1 (Version None)
Quarter: 2006Q3

REPORT INFORMATION
  Report Type: 
  Country: None (occurrence: None)
  Receive Date: 20060925
  Receipt Date: 20060706
  Transmission Date: 20061208
  Serious: No
  Sender: FDA-Public Use
  Company Number: BE-GLAXOSMITHKLINE-B0430392A

PATIENT
  Age: 68 Year
  Sex: Male
  Weight: 78 kg

DRUGS (3)
  1. MALARONE [Suspect]
     Indication: MALARIA PROPHYLAXIS
     Dosage: 1TAB PER DAY
     Route: 048
     Dates: start: 20060623, end: 20060709
  2. ANXIOLYTIC [Concomitant]
     Indication: STRESS
  3. SERTRALINE HCL [Concomitant]
     Indication: ANXIETY
     Dosage: 50MG PER DAY
     Route: 048

REACTIONS (1)
  - CONFUSIONAL STATE [None]
